FAERS Safety Report 23505922 (Version 6)
Quarter: 2024Q2

REPORT INFORMATION
  Report Type: Spontaneous
  Country: JP (occurrence: JP)
  Receive Date: 20240209
  Receipt Date: 20240515
  Transmission Date: 20240716
  Serious: Yes (Other)
  Sender: FDA-Public Use
  Company Number: JP-ASTELLAS-2024JP001043

PATIENT
  Sex: Male

DRUGS (1)
  1. PADCEV [Suspect]
     Active Substance: ENFORTUMAB VEDOTIN-EJFV
     Indication: Bladder cancer
     Dosage: 1.25 MG/KG, ONCE WEEKLY FOR 3 CONSECUTIVE WEEKS, AND INTERRUPTION AT WEEK 4
     Route: 041

REACTIONS (1)
  - Metastases to central nervous system [Not Recovered/Not Resolved]
